FAERS Safety Report 10751662 (Version 3)
Quarter: 2015Q3

REPORT INFORMATION
  Report Type: Report from Study
  Country: US (occurrence: US)
  Receive Date: 20150130
  Receipt Date: 20150727
  Transmission Date: 20151125
  Serious: Yes (Other)
  Sender: FDA-Public Use
  Company Number: US-SA-2015SA003713

PATIENT
  Age: 57 Year
  Sex: Female
  Weight: 75 kg

DRUGS (2)
  1. AUBAGIO [Suspect]
     Active Substance: TERIFLUNOMIDE
     Indication: MULTIPLE SCLEROSIS
     Route: 048
     Dates: start: 20150106
  2. COPAXONE [Concomitant]
     Active Substance: GLATIRAMER ACETATE
     Indication: MULTIPLE SCLEROSIS
     Dates: start: 20090601, end: 20150101

REACTIONS (10)
  - Nasal congestion [Unknown]
  - Nasopharyngitis [Unknown]
  - Pneumonia [Unknown]
  - Nausea [Recovering/Resolving]
  - Hallucination, auditory [Unknown]
  - Paraesthesia [Unknown]
  - Pyrexia [Unknown]
  - Condition aggravated [Unknown]
  - Cough [Unknown]
  - Hypoaesthesia [Unknown]

NARRATIVE: CASE EVENT DATE: 201501
